FAERS Safety Report 26173254 (Version 2)
Quarter: 2025Q4

REPORT INFORMATION
  Report Type: Report from Study
  Country: US (occurrence: US)
  Receive Date: 20251218
  Receipt Date: 20251230
  Transmission Date: 20260118
  Serious: Yes (Other)
  Sender: ALEXION PHARMACEUTICALS
  Company Number: US-ASTRAZENECA-202512NAM004332US

PATIENT
  Age: 43 Year
  Sex: Male

DRUGS (1)
  1. STRENSIQ [Suspect]
     Active Substance: ASFOTASE ALFA
     Indication: Hypophosphataemia
     Dosage: 80 MILLIGRAM, SIX TIMES/WEEK

REACTIONS (6)
  - Symptom recurrence [Not Recovered/Not Resolved]
  - Neuropathy peripheral [Unknown]
  - Muscular weakness [Unknown]
  - Myalgia [Unknown]
  - Brain fog [Unknown]
  - Eye disorder [Unknown]
